FAERS Safety Report 26107559 (Version 2)
Quarter: 2025Q4

REPORT INFORMATION
  Report Type: Spontaneous
  Country: JP (occurrence: JP)
  Receive Date: 20251201
  Receipt Date: 20251211
  Transmission Date: 20260118
  Serious: Yes (Other)
  Sender: ORGANON
  Company Number: JP-ORGANON-O2511JPN002311

PATIENT
  Age: 92 Year
  Sex: Male

DRUGS (1)
  1. BONALON [Suspect]
     Active Substance: ALENDRONATE SODIUM
     Dosage: 35 MILLIGRAM PER WEEK

REACTIONS (1)
  - Gastric fistula [Unknown]
